FAERS Safety Report 22222488 (Version 12)
Quarter: 2024Q4

REPORT INFORMATION
  Report Type: Spontaneous
  Country: CA (occurrence: CA)
  Receive Date: 20230418
  Receipt Date: 20241023
  Transmission Date: 20250115
  Serious: Yes (Other)
  Sender: RANBAXY
  Company Number: CA-SUNPHARMA-2023R1-384108AA

PATIENT
  Sex: Female

DRUGS (41)
  1. DIVIGEL [Interacting]
     Active Substance: ESTRADIOL
     Indication: Product used for unknown indication
     Dosage: 1 MILLIGRAM PACK
     Route: 067
  2. ACETAMINOPHEN\BUTALBITAL\CAFFEINE [Suspect]
     Active Substance: ACETAMINOPHEN\BUTALBITAL\CAFFEINE
     Indication: Pyrexia
     Dosage: 3 DOSAGE FORM
     Route: 065
  3. ACETAMINOPHEN\BUTALBITAL\CAFFEINE [Suspect]
     Active Substance: ACETAMINOPHEN\BUTALBITAL\CAFFEINE
     Indication: Pain
     Dosage: 2 DOSAGE FORM, BID
     Route: 065
  4. AMLODIPINE [Suspect]
     Active Substance: AMLODIPINE BESYLATE
     Indication: Product used for unknown indication
     Dosage: 1 DOSAGE FORM, (1 DOSAGE FORM,1 IN 1 D)
     Route: 065
  5. ARIPIPRAZOLE [Suspect]
     Active Substance: ARIPIPRAZOLE
     Indication: Product used for unknown indication
     Dosage: UNK
     Route: 066
  6. CHOLECALCIFEROL [Suspect]
     Active Substance: CHOLECALCIFEROL
     Indication: Product used for unknown indication
     Dosage: UNK
     Route: 065
  7. CLOZAPINE [Suspect]
     Active Substance: CLOZAPINE
     Indication: Schizophrenia
     Dosage: 3 DOSAGE FORM, (3 DOSAGE FORM,1 IN 1 D)
     Route: 065
  8. CLOZAPINE [Suspect]
     Active Substance: CLOZAPINE
     Dosage: 1 DOSAGE FORM, (1 DOSAGE FORM,1 IN 1 D)
     Route: 065
  9. LEVOTHYROXINE SODIUM [Suspect]
     Active Substance: LEVOTHYROXINE SODIUM
     Indication: Product used for unknown indication
     Dosage: 1 DOSAGE FORM
     Route: 065
  10. OLANZAPINE [Suspect]
     Active Substance: OLANZAPINE
     Indication: Mood altered
     Dosage: 3 DOSAGE FORM,(3 DOSAGE FORM,1 IN 1 D)
     Route: 065
  11. OLANZAPINE [Suspect]
     Active Substance: OLANZAPINE
     Dosage: UNK UNK, BID
     Route: 065
  12. OLANZAPINE [Suspect]
     Active Substance: OLANZAPINE
     Dosage: 3 UNK, 3 TIMES  (1 IN 12 HR)
     Route: 065
  13. OLANZAPINE [Suspect]
     Active Substance: OLANZAPINE
     Dosage: 1 DOSAGE FORM, QD
     Route: 065
  14. OLANZAPINE [Suspect]
     Active Substance: OLANZAPINE
     Dosage: 2 UNK
     Route: 065
  15. OLANZAPINE [Suspect]
     Active Substance: OLANZAPINE
     Dosage: 6 UNK
     Route: 065
  16. OLANZAPINE [Suspect]
     Active Substance: OLANZAPINE
     Dosage: UNK
  17. RANITIDINE [Suspect]
     Active Substance: RANITIDINE
     Indication: Product used for unknown indication
     Dosage: 150 MILLIGRAM, BID
     Route: 065
  18. RANITIDINE [Suspect]
     Active Substance: RANITIDINE
     Dosage: 2 DOSAGE FORM, QD
     Route: 065
  19. RANITIDINE [Suspect]
     Active Substance: RANITIDINE
     Dosage: 1 DOSAGE FORM, BID
     Route: 065
  20. ZOPICLONE [Suspect]
     Active Substance: ZOPICLONE
     Indication: Insomnia
     Dosage: 1 DOSAGE FORM, QD
     Route: 065
  21. CLOTRIMAZOLE [Suspect]
     Active Substance: CLOTRIMAZOLE
     Indication: Rash
     Dosage: 4 DOSAGE FORM, BID
     Route: 065
  22. ACETAMINOPHEN\CARBINOXAMINE MALEATE\PHENYLEPHRINE HYDROCHLORIDE [Suspect]
     Active Substance: ACETAMINOPHEN\CARBINOXAMINE MALEATE\PHENYLEPHRINE HYDROCHLORIDE
     Indication: Pain
     Dosage: UNK
     Route: 065
  23. ALUMINUM HYDROXIDE\DIMETHICONE\MAGNESIUM HYDROXIDE [Suspect]
     Active Substance: ALUMINUM HYDROXIDE\DIMETHICONE\MAGNESIUM HYDROXIDE
     Indication: Abdominal discomfort
     Dosage: 30 MILLILITER
     Route: 048
  24. INFLUENZA VIRUS VACCINE [Suspect]
     Active Substance: INFLUENZA VIRUS VACCINE
     Indication: Prophylaxis
     Dosage: 0.2 MILLILITER
     Route: 045
  25. REXULTI [Suspect]
     Active Substance: BREXPIPRAZOLE
     Indication: Product used for unknown indication
     Dosage: UNK, BID
     Route: 065
  26. DIVALPROEX SODIUM [Suspect]
     Active Substance: DIVALPROEX SODIUM
     Indication: Product used for unknown indication
     Dosage: 2 DOSAGE FORM
     Route: 065
  27. ACETAMINOPHEN [Suspect]
     Active Substance: ACETAMINOPHEN
     Indication: Pyrexia
     Dosage: 2 DOSAGE FORM
     Route: 005
  28. ACETAMINOPHEN [Suspect]
     Active Substance: ACETAMINOPHEN
     Indication: Pain
     Dosage: 1 DOSAGE FORM, BID
     Route: 005
  29. PREMARIN [Suspect]
     Active Substance: ESTROGENS, CONJUGATED
     Indication: Product used for unknown indication
     Dosage: 0.5 MILLIGRAM
     Route: 061
  30. VITAMIN D3 [Suspect]
     Active Substance: CHOLECALCIFEROL
     Indication: Product used for unknown indication
     Dosage: 1 DOSAGE FORM
     Route: 065
  31. ESTRADIOL [Suspect]
     Active Substance: ESTRADIOL
     Indication: Product used for unknown indication
     Dosage: 1 DOSAGE FORM
     Route: 067
  32. ALUMINUM [Suspect]
     Active Substance: ALUMINUM
     Indication: Abdominal discomfort
     Dosage: 30 MILLILITER
     Route: 048
  33. PREMARIN [Suspect]
     Active Substance: ESTROGENS, CONJUGATED
     Indication: Product used for unknown indication
     Dosage: UNK
     Route: 061
  34. VALPROIC ACID [Suspect]
     Active Substance: VALPROIC ACID
     Indication: Product used for unknown indication
     Dosage: UNK, BID
     Route: 065
  35. INFLUENZA VIRUS VACCINE [Suspect]
     Active Substance: INFLUENZA VIRUS VACCINE
     Indication: Prophylaxis
     Dosage: UNK
     Route: 065
  36. PHENYLEPHRINE [Suspect]
     Active Substance: PHENYLEPHRINE HYDROCHLORIDE
     Indication: Product used for unknown indication
     Dosage: UNK
     Route: 065
  37. VALPROATE SODIUM [Suspect]
     Active Substance: VALPROATE SODIUM
     Indication: Product used for unknown indication
     Dosage: UNK
     Route: 065
  38. PREMARIN [Suspect]
     Active Substance: ESTROGENS, CONJUGATED
     Indication: Product used for unknown indication
     Dosage: UNK
     Route: 065
  39. METHYLTESTOSTERONE [Suspect]
     Active Substance: METHYLTESTOSTERONE
     Indication: Product used for unknown indication
     Dosage: UNK
     Route: 065
  40. ALUMINUM HYDROXIDE\MAGNESIUM HYDROXIDE [Suspect]
     Active Substance: ALUMINUM HYDROXIDE\MAGNESIUM HYDROXIDE
     Indication: Abdominal discomfort
     Dosage: 30 MILLILITER
     Route: 048
  41. BREXPIPRAZOLE [Suspect]
     Active Substance: BREXPIPRAZOLE
     Indication: Product used for unknown indication
     Dosage: UNK
     Route: 065

REACTIONS (7)
  - Schizoaffective disorder [Unknown]
  - Electrocardiogram QT prolonged [Unknown]
  - Drug level increased [Unknown]
  - Drug interaction [Unknown]
  - Product use issue [Unknown]
  - Insomnia [Unknown]
  - Sinus rhythm [Unknown]

NARRATIVE: CASE EVENT DATE: 20200101
